FAERS Safety Report 21126090 (Version 1)
Quarter: 2022Q3

REPORT INFORMATION
  Report Type: Spontaneous
  Country: US (occurrence: US)
  Receive Date: 20220725
  Receipt Date: 20220725
  Transmission Date: 20221027
  Serious: No
  Sender: FDA-Public Use
  Company Number: ENDG21-07324

PATIENT
  Sex: Female

DRUGS (4)
  1. COLY-MYCIN M [Suspect]
     Active Substance: COLISTIMETHATE SODIUM
     Indication: Bronchiolitis
     Dosage: UNK UNKNOWN, UNKNOWN
     Route: 042
  2. COLY-MYCIN M [Suspect]
     Active Substance: COLISTIMETHATE SODIUM
     Dosage: 150 MG, BID (RECONSTITUTED IN 3 ML OF SALINE AND INHALED VIA NEBULIZER)
     Route: 050
  3. COLISTIMETHATE SODIUM [Suspect]
     Active Substance: COLISTIMETHATE SODIUM
     Indication: Bronchiolitis
     Dosage: 150 MG, BID (RECONSTITUTED IN 3 ML OF SALINE AND INHALED VIA NEBULIZER)
     Route: 050
  4. TOBRAMYCIN [Concomitant]
     Active Substance: TOBRAMYCIN
     Indication: Bronchiolitis
     Dosage: UNK UNKNOWN, UNKNOWN
     Route: 065

REACTIONS (3)
  - Renal disorder [Unknown]
  - Ill-defined disorder [Unknown]
  - Off label use [Unknown]
